FAERS Safety Report 24070974 (Version 1)
Quarter: 2024Q3

REPORT INFORMATION
  Report Type: Spontaneous
  Country: IT (occurrence: IT)
  Receive Date: 20240710
  Receipt Date: 20240710
  Transmission Date: 20241017
  Serious: No
  Sender: ROCHE
  Company Number: IT-ROCHE-3484100

PATIENT
  Age: 59 Year
  Sex: Female
  Weight: 63.0 kg

DRUGS (2)
  1. PHESGO [Suspect]
     Active Substance: HYALURONIDASE-ZZXF\PERTUZUMAB\TRASTUZUMAB
     Indication: Breast cancer metastatic
     Dosage: LOADING DOSE - THEN 600 MG - 1ST CYCLE - THERAPY EVERY 21 DAYS
     Route: 065
     Dates: start: 20231103, end: 20231103
  2. DOCETAXEL [Suspect]
     Active Substance: DOCETAXEL\DOCETAXEL ANHYDROUS
     Indication: Breast cancer metastatic
     Dosage: 1ST CYCLE - THERAPY EVERY 21 DAYS
     Route: 065
     Dates: start: 20231103, end: 20231103

REACTIONS (1)
  - Paraesthesia [Recovering/Resolving]

NARRATIVE: CASE EVENT DATE: 20231105
